FAERS Safety Report 18417796 (Version 1)
Quarter: 2020Q4

REPORT INFORMATION
  Report Type: Spontaneous
  Country: US (occurrence: US)
  Receive Date: 20201022
  Receipt Date: 20201022
  Transmission Date: 20210114
  Serious: No
  Sender: FDA-Public Use
  Company Number: US-009507513-2010USA004841

PATIENT
  Age: 79 Year
  Sex: Male

DRUGS (1)
  1. BELSOMRA [Suspect]
     Active Substance: SUVOREXANT
     Indication: SLEEP DISORDER
     Dosage: 10MG AT BEDTIME
     Route: 048
     Dates: start: 20201012

REACTIONS (5)
  - Therapeutic product effect delayed [Unknown]
  - Product storage error [Unknown]
  - Product packaging difficult to open [Unknown]
  - Hangover [Recovered/Resolved]
  - Headache [Recovered/Resolved]

NARRATIVE: CASE EVENT DATE: 20201012
